FAERS Safety Report 8327963-6 (Version None)
Quarter: 2012Q2

REPORT INFORMATION
  Report Type: 
  Country: None (occurrence: None)
  Receive Date: 20120502
  Receipt Date: 20120420
  Transmission Date: 20120825
  Serious: Yes (Other)
  Sender: FDA-Public Use
  Company Number: US-SANOFI-AVENTIS-2012SA028493

PATIENT
  Sex: Male

DRUGS (1)
  1. PLAVIX [Suspect]
     Dates: start: 20030101, end: 20060101

REACTIONS (4)
  - TRANSIENT ISCHAEMIC ATTACK [None]
  - DISORIENTATION [None]
  - DIZZINESS [None]
  - MEMORY IMPAIRMENT [None]
